FAERS Safety Report 7187117-6 (Version None)
Quarter: 2010Q4

REPORT INFORMATION
  Report Type: 
  Country: None (occurrence: None)
  Receive Date: 20101222
  Receipt Date: 20101213
  Transmission Date: 20110411
  Serious: Yes (Other)
  Sender: FDA-Public Use
  Company Number: GB-WATSON-2010-16196

PATIENT
  Age: 68 Year
  Sex: Female

DRUGS (4)
  1. RAMIPRIL [Suspect]
     Indication: HYPERTENSION
     Dosage: UNK
  2. AMLODIPINE BESYLATE [Suspect]
     Indication: HYPERTENSION
     Dosage: UNK
  3. FUROSEMIDE (WATSON LABORATORIES) [Suspect]
     Indication: HYPERTENSION
     Dosage: UNK
  4. SOTALOL (WATSON LABORATORIES) [Suspect]
     Indication: HYPERTENSION
     Dosage: UNK

REACTIONS (3)
  - CAROTID ARTERY STENOSIS [None]
  - PARTIAL SEIZURES [None]
  - TRANSIENT ISCHAEMIC ATTACK [None]
